FAERS Safety Report 22678207 (Version 2)
Quarter: 2024Q2

REPORT INFORMATION
  Report Type: Spontaneous
  Country: DE (occurrence: DE)
  Receive Date: 20230706
  Receipt Date: 20240527
  Transmission Date: 20240715
  Serious: Yes (Other)
  Sender: FDA-Public Use
  Company Number: None

PATIENT
  Age: 16 Year
  Sex: Male
  Weight: 85 kg

DRUGS (4)
  1. VENLAFAXINE HYDROCHLORIDE [Suspect]
     Active Substance: VENLAFAXINE HYDROCHLORIDE
     Indication: Obsessive thoughts
     Route: 048
     Dates: start: 2012, end: 2015
  2. ESCITALOPRAM [Suspect]
     Active Substance: ESCITALOPRAM OXALATE
     Indication: Obsessive thoughts
     Dosage: 5 MG TOTAL
     Route: 048
     Dates: start: 202301, end: 202301
  3. CLOMIPRAMINE [Suspect]
     Active Substance: CLOMIPRAMINE
     Indication: Obsessive thoughts
     Route: 048
     Dates: start: 2015, end: 2022
  4. PAROXETINE [Suspect]
     Active Substance: PAROXETINE
     Indication: Obsessive thoughts
     Route: 048
     Dates: start: 2009, end: 2012

REACTIONS (11)
  - Erectile dysfunction [Recovered/Resolved with Sequelae]
  - Erectile dysfunction [Recovered/Resolved with Sequelae]
  - Emotional disorder [Recovered/Resolved with Sequelae]
  - Emotional poverty [Recovered/Resolved with Sequelae]
  - Adverse reaction [Unknown]
  - Genital anaesthesia [Recovered/Resolved with Sequelae]
  - Testicular atrophy [Recovered/Resolved with Sequelae]
  - Sensory disturbance [Recovered/Resolved with Sequelae]
  - Male orgasmic disorder [Recovered/Resolved with Sequelae]
  - Sexual dysfunction [Unknown]
  - Libido decreased [Recovered/Resolved with Sequelae]

NARRATIVE: CASE EVENT DATE: 20090101
